FAERS Safety Report 9707441 (Version 3)
Quarter: 2014Q1

REPORT INFORMATION
  Report Type: Report from Study
  Country: FR (occurrence: FR)
  Receive Date: 20131125
  Receipt Date: 20140203
  Transmission Date: 20141002
  Serious: Yes (Hospitalization, Other)
  Sender: FDA-Public Use
  Company Number: PHHY2013FR133758

PATIENT
  Age: 59 Year
  Sex: Female

DRUGS (9)
  1. MYCOPHENOLIC ACID [Suspect]
     Indication: RENAL TRANSPLANT
     Dosage: 1440 MG, QD
     Route: 048
     Dates: start: 20130506
  2. MYCOPHENOLIC ACID [Suspect]
     Dosage: 720 MG, QD
     Route: 048
  3. PROGRAF [Concomitant]
     Indication: IMMUNOSUPPRESSION
     Dosage: 4 MG, UNK
     Dates: start: 20130524, end: 20130530
  4. PROGRAF [Concomitant]
     Dosage: 3 MG, UNK
     Dates: start: 20130531, end: 20130606
  5. PROGRAF [Concomitant]
     Dosage: 1.5 MG, UNK
     Dates: start: 20130607, end: 20130715
  6. PROGRAF [Concomitant]
     Dosage: 4 MG, UNK
     Dates: start: 20130902, end: 20130903
  7. PROGRAF [Concomitant]
     Dosage: 2 MG, UNK
     Dates: start: 20130904
  8. SOLUPRED//PREDNISOLONE [Concomitant]
     Indication: IMMUNOSUPPRESSION
     Dosage: 20 MG, UNK
     Dates: start: 20130508, end: 20130805
  9. HEPARIN [Concomitant]
     Indication: PLATELET AGGREGATION INHIBITION
     Dosage: 5000 IU, UNK
     Dates: start: 20130506, end: 20130508

REACTIONS (5)
  - Anaemia [Recovered/Resolved]
  - C-reactive protein increased [Unknown]
  - Cytomegalovirus infection [Unknown]
  - Renal haematoma [Unknown]
  - Blood creatinine increased [Recovered/Resolved]
